FAERS Safety Report 15895321 (Version 1)
Quarter: 2019Q1

REPORT INFORMATION
  Report Type: Spontaneous
  Country: BR (occurrence: BR)
  Receive Date: 20190131
  Receipt Date: 20190131
  Transmission Date: 20190417
  Serious: Yes (Death, Other)
  Sender: FDA-Public Use
  Company Number: BR-TORRENT-00004841

PATIENT
  Age: 35 Year
  Sex: Male

DRUGS (6)
  1. SERTRALINE [Suspect]
     Active Substance: SERTRALINE HYDROCHLORIDE
     Indication: OBSESSIVE-COMPULSIVE DISORDER
     Dosage: UP TO 200 MG/DAY
  2. ZOLPIDEM [Suspect]
     Active Substance: ZOLPIDEM\ZOLPIDEM TARTRATE
     Indication: ANXIETY DISORDER
     Dosage: 6.25 MG/DAY
  3. QUETIAPINE. [Suspect]
     Active Substance: QUETIAPINE
     Indication: OBSESSIVE-COMPULSIVE DISORDER
  4. KETAMINE [Suspect]
     Active Substance: KETAMINE
     Indication: PRODUCT USED FOR UNKNOWN INDICATION
     Dosage: UNKNOWN
  5. CLONAZEPAM. [Suspect]
     Active Substance: CLONAZEPAM
     Indication: OBSESSIVE-COMPULSIVE DISORDER
     Dosage: 0.51.0 MG/DAY
  6. LITHIUM. [Suspect]
     Active Substance: LITHIUM
     Indication: ANXIETY DISORDER

REACTIONS (2)
  - Therapeutic response decreased [Unknown]
  - Completed suicide [Fatal]
